FAERS Safety Report 6553404-5 (Version None)
Quarter: 2010Q1

REPORT INFORMATION
  Report Type: 
  Country: None (occurrence: None)
  Receive Date: 20100127
  Receipt Date: 20100111
  Transmission Date: 20100710
  Serious: No
  Sender: FDA-Public Use
  Company Number: A0810958A

PATIENT
  Age: 40 Year
  Sex: Female

DRUGS (4)
  1. SUMATRIPTAN SUCCINATE [Suspect]
     Dosage: 6MG SINGLE DOSE
     Route: 058
     Dates: start: 20090922
  2. GSK AUTOINJECTOR [Suspect]
     Route: 058
     Dates: start: 20090922, end: 20090922
  3. METOPROLOL [Concomitant]
     Route: 065
  4. ASPIRIN [Concomitant]
     Route: 065

REACTIONS (7)
  - INJECTION SITE DISCHARGE [None]
  - INJECTION SITE HAEMATOMA [None]
  - INJECTION SITE HAEMORRHAGE [None]
  - INJECTION SITE PAIN [None]
  - INJECTION SITE SCAR [None]
  - INJECTION SITE VESICLES [None]
  - PRODUCT QUALITY ISSUE [None]
